FAERS Safety Report 5836428-2 (Version None)
Quarter: 2008Q3

REPORT INFORMATION
  Report Type: 
  Country: None (occurrence: None)
  Receive Date: 20080807
  Receipt Date: 20080728
  Transmission Date: 20090109
  Serious: Yes (Other)
  Sender: FDA-Public Use
  Company Number: PHHY2008JP15837

PATIENT
  Age: 23 Year
  Sex: Male

DRUGS (2)
  1. EXJADE [Suspect]
     Indication: CONGENITAL APLASTIC ANAEMIA
     Dosage: 1000 MG/DAILY
     Route: 048
     Dates: start: 20080707
  2. CYCLOSPORINE [Concomitant]

REACTIONS (2)
  - GRAFT VERSUS HOST DISEASE [None]
  - RASH [None]
